FAERS Safety Report 21279454 (Version 1)
Quarter: 2022Q3

REPORT INFORMATION
  Report Type: Spontaneous
  Country: IN (occurrence: IN)
  Receive Date: 20220901
  Receipt Date: 20220901
  Transmission Date: 20221027
  Serious: Yes (Other)
  Sender: FDA-Public Use
  Company Number: IN-SUN PHARMACEUTICAL INDUSTRIES LTD-2022R1-353105

PATIENT
  Age: 24 Year
  Sex: Female

DRUGS (3)
  1. METOPROLOL [Suspect]
     Active Substance: METOPROLOL
     Indication: Multiple endocrine neoplasia Type 2
     Dosage: UNK
     Route: 065
  2. PRAZOSIN [Suspect]
     Active Substance: PRAZOSIN
     Indication: Multiple endocrine neoplasia Type 2
     Dosage: UNK
     Route: 065
  3. NITROPRUSSIDE [Suspect]
     Active Substance: NITROPRUSSIDE
     Indication: Hypertensive crisis
     Dosage: UNK
     Route: 065

REACTIONS (2)
  - Condition aggravated [Unknown]
  - Exposure during pregnancy [Unknown]
